FAERS Safety Report 21413316 (Version 2)
Quarter: 2023Q1

REPORT INFORMATION
  Report Type: Report from Study
  Country: US (occurrence: US)
  Receive Date: 20221006
  Receipt Date: 20230201
  Transmission Date: 20230418
  Serious: Yes (Other)
  Sender: FDA-Public Use
  Company Number: US-ABBVIE-4135309

PATIENT
  Age: 57 Year
  Sex: Female

DRUGS (2)
  1. SKYRIZI [Suspect]
     Active Substance: RISANKIZUMAB-RZAA
     Indication: Psoriasis
     Route: 058
  2. SKYRIZI [Suspect]
     Active Substance: RISANKIZUMAB-RZAA
     Indication: Psoriatic arthropathy

REACTIONS (8)
  - Visual impairment [Recovered/Resolved]
  - Eye pain [Recovered/Resolved]
  - Upper respiratory tract congestion [Recovered/Resolved]
  - Sinus pain [Recovered/Resolved]
  - Eye swelling [Recovered/Resolved]
  - Sinusitis [Unknown]
  - Ocular hyperaemia [Recovered/Resolved]
  - Eye pain [Recovered/Resolved]

NARRATIVE: CASE EVENT DATE: 20220924
